FAERS Safety Report 6454248-5 (Version None)
Quarter: 2009Q4

REPORT INFORMATION
  Report Type: 
  Country: None (occurrence: None)
  Receive Date: 20091124
  Receipt Date: 20091119
  Transmission Date: 20100525
  Serious: Yes (Death)
  Sender: FDA-Public Use
  Company Number: US-GENENTECH-294060

PATIENT
  Sex: Male
  Weight: 96.145 kg

DRUGS (17)
  1. ERLOTINIB [Suspect]
     Indication: NON-SMALL CELL LUNG CANCER
     Dosage: 150 MG, UNK
     Dates: start: 20091102
  2. AVASTIN [Suspect]
     Indication: NON-SMALL CELL LUNG CANCER
     Dosage: 15 MG/KG, Q3W
     Route: 042
     Dates: start: 20091110, end: 20091110
  3. TAXOL [Concomitant]
     Indication: NON-SMALL CELL LUNG CANCER
     Dosage: 200 MG/M2, Q3W
     Route: 042
     Dates: start: 20091110, end: 20091110
  4. CARBOPLATIN [Concomitant]
     Indication: NON-SMALL CELL LUNG CANCER
     Dosage: 6 AUC, Q3W
     Route: 042
     Dates: start: 20091110, end: 20091110
  5. CLONIDINE [Concomitant]
     Indication: HYPERTENSION
     Dosage: 2 MG, 1/WEEK
     Route: 061
     Dates: start: 20070101
  6. ASPIRIN [Concomitant]
     Indication: PROPHYLAXIS
     Dosage: 81 MG, QD
     Route: 048
     Dates: start: 19600101
  7. LASIX [Concomitant]
     Indication: DIURETIC THERAPY
     Dosage: 50 MG, QD
     Route: 048
     Dates: start: 20081101
  8. LOSARTAN POTASSIUM [Concomitant]
     Indication: HYPERTENSION
     Dosage: 100 MG, QD
     Route: 048
     Dates: start: 20070101
  9. SOTALOL HCL [Concomitant]
     Indication: ARRHYTHMIA
     Dosage: 60 MG, BID
     Route: 048
     Dates: start: 20070101
  10. WARFARIN SODIUM [Concomitant]
     Indication: ANTICOAGULATION DRUG LEVEL ABOVE THERAPEUTIC
     Dosage: 5 MG, QD
     Route: 048
     Dates: start: 20070101
  11. SIMAVASTATIN [Concomitant]
     Indication: HYPERCHOLESTEROLAEMIA
     Dosage: 20 MG, QD
     Route: 048
     Dates: start: 20070101
  12. MORPHINE SULFATE [Concomitant]
     Indication: PAIN
     Dosage: 30 MG, Q12H
     Route: 048
     Dates: start: 20090901
  13. PLENDIL [Concomitant]
     Indication: HYPERTENSION
     Dosage: 2.5 MG, QD
     Route: 048
     Dates: start: 20091002
  14. OMEPRAZOLE [Concomitant]
     Indication: REFLUX GASTRITIS
     Dosage: 20 MG, QD
     Route: 048
     Dates: start: 19850101
  15. DEXAMETHASONE [Concomitant]
     Indication: PREMEDICATION
     Dosage: 20 MG, UNK
     Route: 048
     Dates: start: 20091109
  16. PHENERGAN HCL [Concomitant]
     Indication: NAUSEA
     Dosage: 25 MG, Q6H
     Route: 048
     Dates: start: 20091110
  17. CONCOMITANT DRUGS [Concomitant]
     Indication: DEPRESSION

REACTIONS (1)
  - DEATH [None]
